FAERS Safety Report 17720763 (Version 1)
Quarter: 2020Q2

REPORT INFORMATION
  Report Type: Spontaneous
  Country: US (occurrence: US)
  Receive Date: 20200428
  Receipt Date: 20200428
  Transmission Date: 20200714
  Serious: Yes (Hospitalization)
  Sender: FDA-Public Use
  Company Number: US-ROCHE-2462930

PATIENT
  Sex: Female

DRUGS (8)
  1. AMLODIPINE BESYLATE. [Concomitant]
     Active Substance: AMLODIPINE BESYLATE
  2. LEVOTHYROXINE SODIUM. [Concomitant]
     Active Substance: LEVOTHYROXINE SODIUM
  3. NORMAL SALINE [Concomitant]
     Active Substance: SODIUM CHLORIDE
     Route: 065
  4. ELIQUIS [Concomitant]
     Active Substance: APIXABAN
  5. ATORVASTATIN CALCIUM. [Concomitant]
     Active Substance: ATORVASTATIN CALCIUM
  6. VITAMIN C [Concomitant]
     Active Substance: ASCORBIC ACID
     Route: 042
  7. AVASTIN [Suspect]
     Active Substance: BEVACIZUMAB
     Indication: IRON DEFICIENCY ANAEMIA
     Route: 042
  8. LATANOPROST. [Concomitant]
     Active Substance: LATANOPROST

REACTIONS (3)
  - Off label use [Unknown]
  - Pain [Unknown]
  - Intentional product use issue [Unknown]
